FAERS Safety Report 6925702-4 (Version None)
Quarter: 2010Q3

REPORT INFORMATION
  Report Type: 
  Country: None (occurrence: None)
  Receive Date: 20100816
  Receipt Date: 20100805
  Transmission Date: 20110219
  Serious: Yes (Hospitalization)
  Sender: FDA-Public Use
  Company Number: A0875663A

PATIENT
  Sex: Male

DRUGS (1)
  1. AVANDIA [Suspect]
     Dates: start: 20020101, end: 20040701

REACTIONS (3)
  - CHEST PAIN [None]
  - RETINAL HAEMORRHAGE [None]
  - SWELLING [None]
